FAERS Safety Report 24233758 (Version 6)
Quarter: 2025Q3

REPORT INFORMATION
  Report Type: Spontaneous
  Country: US (occurrence: US)
  Receive Date: 20240821
  Receipt Date: 20250929
  Transmission Date: 20251021
  Serious: No
  Sender: SANOFI AVENTIS
  Company Number: US-SA-SAC20240819000385

PATIENT
  Sex: Male
  Weight: 74.83 kg

DRUGS (2)
  1. DUPIXENT [Suspect]
     Active Substance: DUPILUMAB
     Indication: Nasal polyps
     Dosage: 300MG/2ML, QOW
     Route: 058
     Dates: start: 202207
  2. TADALAFIL [Concomitant]
     Active Substance: TADALAFIL

REACTIONS (3)
  - Injection site mass [Recovered/Resolved]
  - Injection site irritation [Unknown]
  - Needle issue [Unknown]
